FAERS Safety Report 15036505 (Version 1)
Quarter: 2018Q2

REPORT INFORMATION
  Report Type: Spontaneous
  Country: FR (occurrence: FR)
  Receive Date: 20180620
  Receipt Date: 20180620
  Transmission Date: 20180711
  Serious: Yes (Hospitalization, Other)
  Sender: FDA-Public Use
  Company Number: FR-SA-2018SA151801

PATIENT
  Age: 82 Year
  Sex: Female

DRUGS (4)
  1. BACTRIM [Suspect]
     Active Substance: SULFAMETHOXAZOLE\TRIMETHOPRIM
     Indication: DEVICE RELATED INFECTION
     Route: 048
     Dates: start: 200906, end: 200907
  2. RIFADINE [Suspect]
     Active Substance: RIFAMPIN
     Route: 048
     Dates: start: 200906, end: 200906
  3. PYOSTACINE [Suspect]
     Active Substance: PRISTINAMYCIN
     Indication: DEVICE RELATED INFECTION
     Route: 048
     Dates: start: 200907, end: 200907
  4. DALACINE [CLINDAMYCIN HYDROCHLORIDE] [Suspect]
     Active Substance: CLINDAMYCIN HYDROCHLORIDE
     Indication: DEVICE RELATED INFECTION
     Route: 048
     Dates: start: 200907, end: 200907

REACTIONS (3)
  - Anaemia [Unknown]
  - Cholestasis [Recovering/Resolving]
  - Vomiting [Recovered/Resolved]

NARRATIVE: CASE EVENT DATE: 200906
